FAERS Safety Report 17674181 (Version 2)
Quarter: 2020Q2

REPORT INFORMATION
  Report Type: Spontaneous
  Country: US (occurrence: US)
  Receive Date: 20200416
  Receipt Date: 20200501
  Transmission Date: 20200714
  Serious: No
  Sender: FDA-Public Use
  Company Number: US-GLAXOSMITHKLINE-US2020AMR064618

PATIENT
  Sex: Female

DRUGS (2)
  1. ZEJULA [Suspect]
     Active Substance: NIRAPARIB
     Indication: OVARIAN CANCER
     Dosage: 100 MG, QD
     Dates: start: 20200311
  2. PARP INHIBITOR [Suspect]
     Active Substance: UNSPECIFIED INGREDIENT
     Indication: PRODUCT USED FOR UNKNOWN INDICATION
     Dosage: UNK

REACTIONS (14)
  - Nightmare [Unknown]
  - Insomnia [Unknown]
  - Rhinorrhoea [Unknown]
  - Pollakiuria [Unknown]
  - Nausea [Recovering/Resolving]
  - Fatigue [Unknown]
  - Urinary tract infection [Unknown]
  - Glomerular filtration rate decreased [Unknown]
  - Sleep disorder [Unknown]
  - Blood creatinine increased [Unknown]
  - Dysuria [Unknown]
  - Screaming [Unknown]
  - Nasal dryness [Unknown]
  - Abdominal pain [Recovering/Resolving]
